FAERS Safety Report 5602465-6 (Version None)
Quarter: 2008Q1

REPORT INFORMATION
  Report Type: 
  Country: None (occurrence: None)
  Receive Date: 20080125
  Receipt Date: 20080111
  Transmission Date: 20080703
  Serious: Yes (Other)
  Sender: FDA-Public Use
  Company Number: US-ELI_LILLY_AND_COMPANY-US200801002541

PATIENT
  Sex: Female
  Weight: 95.238 kg

DRUGS (3)
  1. CYMBALTA [Suspect]
     Indication: DEPRESSION
     Dosage: 60 MG, DAILY (1/D)
     Dates: start: 20050901
  2. CYMBALTA [Suspect]
     Dosage: 30 MG, DAILY (1/D)
  3. CYMBALTA [Suspect]
     Dosage: 30 MG, QOD
     Dates: end: 20071101

REACTIONS (12)
  - CRYING [None]
  - DIARRHOEA [None]
  - DRUG WITHDRAWAL SYNDROME [None]
  - FATIGUE [None]
  - HOT FLUSH [None]
  - IRRITABILITY [None]
  - NAUSEA [None]
  - NECK PAIN [None]
  - PARAESTHESIA [None]
  - TINNITUS [None]
  - VISION BLURRED [None]
  - VOMITING [None]
